FAERS Safety Report 8947879 (Version 1)
Quarter: 2012Q4

REPORT INFORMATION
  Report Type: 
  Country: US (occurrence: US)
  Receive Date: 20121204
  Receipt Date: 20121204
  Transmission Date: 20130627
  Serious: Yes (Other)
  Sender: FDA-Public Use
  Company Number: US-PFIZER INC-2012299059

PATIENT
  Age: 40 Year
  Sex: Male

DRUGS (9)
  1. NEURONTIN [Suspect]
     Dosage: 800 mg, 2x/day
     Route: 048
     Dates: start: 20121001
  2. PERCOCET [Concomitant]
     Dosage: 7.5mg oxycodone and 500mg acetaminophen, 1 tablet orally three times a day
     Route: 048
     Dates: start: 20121001
  3. HYDRALAZINE HYDROCHLORIDE [Concomitant]
     Dosage: 50 mg, 2x/day
     Dates: start: 20121001
  4. COREG [Concomitant]
     Dosage: 25 mg, Daily
     Route: 048
     Dates: start: 20120807
  5. MOBIC [Concomitant]
     Dosage: 15 mg, Daily
     Route: 048
     Dates: start: 20120328
  6. PRAVACHOL [Concomitant]
     Dosage: 1 tablet PO TID
     Route: 048
     Dates: start: 20111223
  7. ACIPHEX [Concomitant]
     Dosage: 20 mg, Daily
     Route: 048
     Dates: start: 20111223
  8. NITROSTAT [Concomitant]
     Indication: CHEST PAIN
     Dosage: 0.4 mg every 5 minutes as needed
     Route: 060
     Dates: start: 20111016
  9. ACETYLSALICYLIC ACID [Concomitant]
     Dosage: 81 mg, Daily
     Route: 048
     Dates: start: 20100823

REACTIONS (9)
  - Back pain [Unknown]
  - Pain in extremity [Unknown]
  - Musculoskeletal pain [Unknown]
  - Arthralgia [Unknown]
  - Pain [Unknown]
  - Paraesthesia [Unknown]
  - Joint range of motion decreased [Unknown]
  - Muscular weakness [Unknown]
  - Muscle spasms [Unknown]
